FAERS Safety Report 23605231 (Version 1)
Quarter: 2024Q1

REPORT INFORMATION
  Report Type: Spontaneous
  Country: US (occurrence: US)
  Receive Date: 20240307
  Receipt Date: 20240307
  Transmission Date: 20240410
  Serious: Yes (Hospitalization, Other)
  Sender: FDA-Public Use
  Company Number: US-MYLANLABS-2024M1021017

PATIENT
  Age: 37 Year
  Sex: Male

DRUGS (10)
  1. TRAZODONE [Suspect]
     Active Substance: TRAZODONE HYDROCHLORIDE
     Indication: Depression
     Dosage: UNK
     Route: 065
  2. TRAZODONE [Suspect]
     Active Substance: TRAZODONE HYDROCHLORIDE
     Indication: Post-traumatic stress disorder
  3. SERTRALINE [Suspect]
     Active Substance: SERTRALINE HYDROCHLORIDE
     Indication: Depression
     Dosage: UNK
     Route: 065
  4. SERTRALINE [Suspect]
     Active Substance: SERTRALINE HYDROCHLORIDE
     Indication: Post-traumatic stress disorder
  5. PRAZOSIN [Suspect]
     Active Substance: PRAZOSIN
     Indication: Depression
     Dosage: UNK
     Route: 065
  6. PRAZOSIN [Suspect]
     Active Substance: PRAZOSIN
     Indication: Post-traumatic stress disorder
  7. SILDENAFIL [Suspect]
     Active Substance: SILDENAFIL
     Indication: Priapism
     Dosage: UNK
     Route: 065
  8. PSEUDOEPHEDRINE [Suspect]
     Active Substance: PSEUDOEPHEDRINE
     Indication: Priapism
     Dosage: UNK,RECEIVED PILLS
     Route: 065
  9. PSEUDOEPHEDRINE [Suspect]
     Active Substance: PSEUDOEPHEDRINE
     Dosage: 8 DOSAGE FORM, RECEIVED TOTAL OF 8 PILLS OF PSEUDOEPHEDRINE 30MG IN THE SPAN OF SIX HOURS
     Route: 065
  10. PHENYLEPHRINE [Concomitant]
     Active Substance: PHENYLEPHRINE HYDROCHLORIDE
     Indication: Priapism
     Dosage: UNK
     Route: 065

REACTIONS (3)
  - Priapism [Recovering/Resolving]
  - Drug ineffective for unapproved indication [Unknown]
  - Off label use [Unknown]
